FAERS Safety Report 12497250 (Version 1)
Quarter: 2016Q2

REPORT INFORMATION
  Report Type: Report from Study
  Country: BR (occurrence: BR)
  Receive Date: 20160624
  Receipt Date: 20160624
  Transmission Date: 20160815
  Serious: Yes (Other)
  Sender: FDA-Public Use
  Company Number: BR-ABBVIE-16K-020-1655347-00

PATIENT
  Age: 36 Year
  Sex: Male
  Weight: 76 kg

DRUGS (3)
  1. HUMIRA [Suspect]
     Active Substance: ADALIMUMAB
     Indication: ANKYLOSING SPONDYLITIS
     Route: 058
     Dates: start: 20150701, end: 201601
  2. NAPROXEN. [Concomitant]
     Active Substance: NAPROXEN
     Indication: GASTRITIS
     Route: 048
  3. VIMOVO [Concomitant]
     Active Substance: ESOMEPRAZOLE MAGNESIUM\NAPROXEN
     Indication: PROPHYLAXIS
     Route: 048

REACTIONS (12)
  - Gastric haemorrhage [Unknown]
  - Pain in extremity [Unknown]
  - Ankylosing spondylitis [Unknown]
  - Haemorrhage [Unknown]
  - Abdominal distension [Unknown]
  - Musculoskeletal stiffness [Unknown]
  - Pain [Not Recovered/Not Resolved]
  - Peripheral swelling [Unknown]
  - Ankylosing spondylitis [Not Recovered/Not Resolved]
  - Neck pain [Unknown]
  - Ankylosing spondylitis [Unknown]
  - Sciatic nerve neuropathy [Unknown]

NARRATIVE: CASE EVENT DATE: 2016
